FAERS Safety Report 10696194 (Version 2)
Quarter: 2015Q1

REPORT INFORMATION
  Report Type: Spontaneous
  Country: US (occurrence: US)
  Receive Date: 20150107
  Receipt Date: 20150112
  Transmission Date: 20150721
  Serious: Yes (Other)
  Sender: FDA-Public Use
  Company Number: US-BAYER-2015-001558

PATIENT
  Sex: Male

DRUGS (1)
  1. STAXYN [Suspect]
     Active Substance: VARDENAFIL HYDROCHLORIDE TRIHYDRATE
     Dosage: 10
     Route: 048
     Dates: start: 2010

REACTIONS (6)
  - Gastric haemorrhage [None]
  - Rectal haemorrhage [None]
  - Gastric polyps [None]
  - Rectal cancer [Recovered/Resolved]
  - Libido decreased [None]
  - Sluggishness [None]

NARRATIVE: CASE EVENT DATE: 201005
